FAERS Safety Report 10930671 (Version 1)
Quarter: 2015Q1

REPORT INFORMATION
  Report Type: Spontaneous
  Country: GB (occurrence: GB)
  Receive Date: 20150319
  Receipt Date: 20150319
  Transmission Date: 20150721
  Serious: Yes (Other)
  Sender: FDA-Public Use
  Company Number: GB-WATSON-2015-05276

PATIENT
  Age: 36 Year
  Sex: Male

DRUGS (1)
  1. COTRIMOXAZOLE [Suspect]
     Active Substance: SULFAMETHOXAZOLE\TRIMETHOPRIM
     Indication: WHIPPLE^S DISEASE
     Dosage: UNK
     Route: 048

REACTIONS (9)
  - Retinal vasculitis [Unknown]
  - Deja vu [Unknown]
  - Confusional state [Unknown]
  - Malaise [Unknown]
  - General physical health deterioration [Unknown]
  - Temporal lobe epilepsy [Unknown]
  - Jarisch-Herxheimer reaction [Unknown]
  - Electroencephalogram abnormal [Unknown]
  - Visual impairment [Unknown]
